FAERS Safety Report 14418140 (Version 1)
Quarter: 2018Q1

REPORT INFORMATION
  Report Type: Spontaneous
  Country: US (occurrence: JP)
  Receive Date: 20180122
  Receipt Date: 20180122
  Transmission Date: 20180509
  Serious: Yes (Hospitalization, Other)
  Sender: FDA-Public Use
  Company Number: US-GLAXOSMITHKLINE-JP2018JPN007747

PATIENT
  Age: 14 Year
  Sex: Male

DRUGS (2)
  1. SULTANOL [Suspect]
     Active Substance: ALBUTEROL SULFATE
     Indication: ASTHMA
     Dosage: UNK UNK, PRN
     Route: 055
  2. SEREVENT DISKUS [Suspect]
     Active Substance: SALMETEROL XINAFOATE
     Indication: ASTHMA
     Dosage: UNK
     Route: 055

REACTIONS (13)
  - Anxiety [Recovering/Resolving]
  - Feeling jittery [Recovering/Resolving]
  - Social avoidant behaviour [Recovering/Resolving]
  - Underweight [Recovering/Resolving]
  - Hypertension [Recovering/Resolving]
  - Tachycardia [Recovering/Resolving]
  - Dysmetria [Recovering/Resolving]
  - Hyperreflexia [Recovering/Resolving]
  - Overdose [Unknown]
  - Panic attack [Recovering/Resolving]
  - Asthma [Recovering/Resolving]
  - Dyspnoea [Recovering/Resolving]
  - School refusal [Recovering/Resolving]
